FAERS Safety Report 8071299-8 (Version None)
Quarter: 2012Q1

REPORT INFORMATION
  Report Type: 
  Country: None (occurrence: None)
  Receive Date: 20120125
  Receipt Date: 20120117
  Transmission Date: 20120608
  Serious: Yes (Other)
  Sender: FDA-Public Use
  Company Number: PHHY2012GB004686

PATIENT
  Age: 62 Year
  Sex: Female

DRUGS (4)
  1. PACLITAXEL [Suspect]
     Dosage: 20 MG/M2, UNK
  2. CARBOPLATIN [Concomitant]
     Indication: OVARIAN EPITHELIAL CANCER
     Dates: start: 20070401, end: 20070801
  3. PACLITAXEL [Suspect]
     Indication: OVARIAN EPITHELIAL CANCER
     Dosage: 175 MG/M2, UNK
     Dates: start: 20070401, end: 20070801
  4. PACLITAXEL [Suspect]
     Dosage: 75 MG/M2, UNK

REACTIONS (4)
  - CONCOMITANT DISEASE AGGRAVATED [None]
  - NEOPLASM MALIGNANT [None]
  - HYDRONEPHROSIS [None]
  - NEUROTOXICITY [None]
